FAERS Safety Report 8349079-5 (Version None)
Quarter: 2012Q2

REPORT INFORMATION
  Report Type: 
  Country: None (occurrence: None)
  Receive Date: 20120510
  Receipt Date: 20120507
  Transmission Date: 20120825
  Serious: No
  Sender: FDA-Public Use
  Company Number: US-PFIZER INC-2012101102

PATIENT
  Sex: Female
  Weight: 78.005 kg

DRUGS (7)
  1. FISH OIL [Concomitant]
     Dosage: UNK
  2. MULTI-VITAMINS [Concomitant]
     Dosage: UNK
  3. LISINOPRIL [Concomitant]
     Dosage: UNK
  4. PRAVASTATIN [Concomitant]
  5. SUTENT [Suspect]
     Indication: METASTATIC RENAL CELL CARCINOMA
     Dosage: 50 MG, (2X25MG CAPSULES)
     Dates: start: 20120402
  6. ALLEGRA [Concomitant]
     Dosage: UNK
  7. CALCIUM [Concomitant]
     Dosage: UNK

REACTIONS (15)
  - DRUG HYPERSENSITIVITY [None]
  - DECREASED APPETITE [None]
  - ABDOMINAL DISTENSION [None]
  - GASTROOESOPHAGEAL REFLUX DISEASE [None]
  - RASH [None]
  - DYSPHONIA [None]
  - SINUSITIS [None]
  - FATIGUE [None]
  - PRURITUS [None]
  - ACNE [None]
  - YELLOW SKIN [None]
  - DYSGEUSIA [None]
  - WEIGHT DECREASED [None]
  - HEADACHE [None]
  - UPPER-AIRWAY COUGH SYNDROME [None]
